APPROVED DRUG PRODUCT: BRONKODYL
Active Ingredient: THEOPHYLLINE
Strength: 200MG
Dosage Form/Route: CAPSULE;ORAL
Application: A085264 | Product #002
Applicant: SANOFI AVENTIS US LLC
Approved: Approved Prior to Jan 1, 1982 | RLD: No | RS: No | Type: DISCN